FAERS Safety Report 16577416 (Version 1)
Quarter: 2019Q3

REPORT INFORMATION
  Report Type: Spontaneous
  Country: FR (occurrence: FR)
  Receive Date: 20190716
  Receipt Date: 20190716
  Transmission Date: 20191004
  Serious: Yes (Hospitalization)
  Sender: FDA-Public Use
  Company Number: FR-ASTRAZENECA-2019SE99112

PATIENT
  Sex: Female
  Weight: 65.9 kg

DRUGS (6)
  1. DESLORATADINE. [Suspect]
     Active Substance: DESLORATADINE
     Indication: COUGH
     Dosage: INCONNUE
     Route: 048
     Dates: start: 20190417, end: 20190421
  2. CORTANCYL [Concomitant]
     Active Substance: PREDNISONE
     Route: 048
  3. BACTRIM ADULTES, COMPRIM??? [Concomitant]
     Route: 048
     Dates: end: 20190426
  4. CRESTOR [Suspect]
     Active Substance: ROSUVASTATIN CALCIUM
     Indication: HYPERCHOLESTEROLAEMIA
     Route: 048
     Dates: end: 20190426
  5. LANSOPRAZOLE. [Suspect]
     Active Substance: LANSOPRAZOLE
     Indication: PROPHYLAXIS
     Route: 048
     Dates: end: 20190426
  6. QVAR [Suspect]
     Active Substance: BECLOMETHASONE DIPROPIONATE
     Indication: COUGH
     Dosage: INCONNUE
     Route: 055
     Dates: start: 20190417, end: 20190421

REACTIONS (1)
  - Neutropenia [Recovered/Resolved]

NARRATIVE: CASE EVENT DATE: 20190425
